FAERS Safety Report 6646134-2 (Version None)
Quarter: 2010Q1

REPORT INFORMATION
  Report Type: 
  Country: None (occurrence: None)
  Receive Date: 20100323
  Receipt Date: 20100310
  Transmission Date: 20100710
  Serious: Yes (Hospitalization, Other)
  Sender: FDA-Public Use
  Company Number: US-AMGEN-KDC398933

PATIENT
  Weight: 3.15 kg

DRUGS (10)
  1. ENBREL [Suspect]
     Route: 064
     Dates: start: 20071218, end: 20080922
  2. VITAMIN TAB [Concomitant]
     Route: 064
     Dates: start: 20080129, end: 20080922
  3. CALCIUM WITH VITAMIN D [Concomitant]
     Route: 064
     Dates: start: 20071218, end: 20080125
  4. MULTI-VITAMINS [Concomitant]
     Route: 064
     Dates: start: 20071218, end: 20080125
  5. TUMS [Concomitant]
     Route: 064
     Dates: start: 20071218, end: 20080501
  6. MYLANTA [Concomitant]
     Route: 064
     Dates: start: 20071218, end: 20080508
  7. TYLENOL-500 [Concomitant]
     Route: 064
     Dates: start: 20071218, end: 20080808
  8. SUDAFED 12 HOUR [Concomitant]
     Route: 064
     Dates: start: 20080427, end: 20080501
  9. PEPCID [Concomitant]
     Route: 064
     Dates: start: 20080708, end: 20080808
  10. ALLEGRA [Concomitant]
     Route: 064
     Dates: start: 20080101, end: 20080115

REACTIONS (8)
  - APPARENT LIFE THREATENING EVENT [None]
  - BLOOD CREATINE PHOSPHOKINASE INCREASED [None]
  - BRADYCARDIA [None]
  - CARBON DIOXIDE DECREASED [None]
  - CONVULSION [None]
  - DEPRESSED LEVEL OF CONSCIOUSNESS [None]
  - LIVER FUNCTION TEST ABNORMAL [None]
  - STARING [None]
